FAERS Safety Report 7832194-X (Version None)
Quarter: 2011Q4

REPORT INFORMATION
  Report Type: 
  Country: None (occurrence: None)
  Receive Date: 20111022
  Receipt Date: 20111010
  Transmission Date: 20120403
  Serious: Yes (Hospitalization)
  Sender: FDA-Public Use
  Company Number: US-BAYER-2011-037625

PATIENT
  Age: 29 Year
  Sex: Female
  Weight: 52.154 kg

DRUGS (8)
  1. YAZ [Suspect]
     Indication: ACNE
  2. YAZ [Suspect]
     Indication: CONTRACEPTION
     Dosage: UNK
     Dates: start: 20070101, end: 20090101
  3. EFFEXOR [Concomitant]
     Dosage: 75 MG, CONT
     Route: 048
  4. YASMIN [Suspect]
     Indication: PREMENSTRUAL SYNDROME
  5. YASMIN [Suspect]
     Indication: CONTRACEPTION
     Dosage: UNK
     Dates: start: 20010101, end: 20050101
  6. YASMIN [Suspect]
     Indication: ACNE
  7. YAZ [Suspect]
     Indication: PREMENSTRUAL SYNDROME
  8. KLONOPIN [Concomitant]
     Dosage: 5 MG, HS
     Route: 048

REACTIONS (8)
  - PAIN [None]
  - ANXIETY [None]
  - ANHEDONIA [None]
  - ORGAN FAILURE [None]
  - INJURY [None]
  - EMOTIONAL DISTRESS [None]
  - CHOLECYSTITIS ACUTE [None]
  - GALLBLADDER NON-FUNCTIONING [None]
